FAERS Safety Report 13616513 (Version 2)
Quarter: 2021Q3

REPORT INFORMATION
  Report Type: Spontaneous
  Country: US (occurrence: US)
  Receive Date: 20170606
  Receipt Date: 20210809
  Transmission Date: 20211014
  Serious: No
  Sender: FDA-Public Use
  Company Number: US-SA-2016SA085410

PATIENT
  Age: 72 Year
  Sex: Male

DRUGS (2)
  1. LANTUS SOLOSTAR [Suspect]
     Active Substance: INSULIN GLARGINE
     Dosage: 30 IU, QD
     Route: 065
  2. LANTUS SOLOSTAR [Suspect]
     Active Substance: INSULIN GLARGINE
     Indication: TYPE 2 DIABETES MELLITUS
     Dosage: 40 DF,QD
     Route: 065

REACTIONS (4)
  - Visual impairment [Unknown]
  - Device issue [Unknown]
  - Multiple use of single-use product [Unknown]
  - Injury associated with device [Unknown]

NARRATIVE: CASE EVENT DATE: 20210802
